FAERS Safety Report 6139887-3 (Version None)
Quarter: 2009Q1

REPORT INFORMATION
  Report Type: 
  Country: None (occurrence: None)
  Receive Date: 20090331
  Receipt Date: 20090331
  Transmission Date: 20090719
  Serious: Yes (Life-Threatening, Hospitalization)
  Sender: FDA-Public Use
  Company Number: None

PATIENT
  Age: 58 Year
  Sex: Male
  Weight: 106.92 kg

DRUGS (1)
  1. CETUXIMAB [Suspect]
     Indication: OROPHARYNGEAL CANCER STAGE UNSPECIFIED
     Dosage: 650 MG ONCE IV
     Route: 042
     Dates: start: 20080812, end: 20080812

REACTIONS (7)
  - ANAPHYLACTIC REACTION [None]
  - APNOEA [None]
  - CARDIO-RESPIRATORY ARREST [None]
  - DYSGEUSIA [None]
  - DYSPNOEA [None]
  - HEART RATE INCREASED [None]
  - MEMORY IMPAIRMENT [None]
